FAERS Safety Report 17480381 (Version 1)
Quarter: 2020Q1

REPORT INFORMATION
  Report Type: Spontaneous
  Country: US (occurrence: US)
  Receive Date: 20200228
  Receipt Date: 20200228
  Transmission Date: 20200409
  Serious: No
  Sender: FDA-Public Use
  Company Number: US-SENTYNL THERAPEUTICS, INC.  -2081120

PATIENT
  Age: 67 Year
  Sex: Female
  Weight: 77.27 kg

DRUGS (1)
  1. ABSTRAL [Suspect]
     Active Substance: FENTANYL CITRATE
     Indication: BREAKTHROUGH PAIN
     Route: 048

REACTIONS (2)
  - Product availability issue [Unknown]
  - Product dose omission [Unknown]
